FAERS Safety Report 8152251-0 (Version None)
Quarter: 2012Q1

REPORT INFORMATION
  Report Type: 
  Country: None (occurrence: None)
  Receive Date: 20120214
  Receipt Date: 20101104
  Transmission Date: 20120608
  Serious: Yes (Hospitalization)
  Sender: FDA-Public Use
  Company Number: AU-2010-11-000565

PATIENT
  Age: 60 Year
  Sex: Female

DRUGS (4)
  1. GABAPENTIN [Concomitant]
  2. TOPIRAMATE [Concomitant]
  3. METHADONE HYDROCHLORIDE [Suspect]
     Dosage: 40 MG
  4. ERYTHROMYCIN [Suspect]
     Dosage: 2000 MG

REACTIONS (5)
  - TOXICITY TO VARIOUS AGENTS [None]
  - RESPIRATORY FAILURE [None]
  - HYPERCAPNIA [None]
  - DRUG INTERACTION [None]
  - RESPIRATORY DEPRESSION [None]
